FAERS Safety Report 12211557 (Version 2)
Quarter: 2016Q2

REPORT INFORMATION
  Report Type: Spontaneous
  Country: BR (occurrence: BR)
  Receive Date: 20160325
  Receipt Date: 20160411
  Transmission Date: 20160815
  Serious: Yes (Other)
  Sender: FDA-Public Use
  Company Number: BR-SA-2016SA036680

PATIENT
  Age: 68 Year
  Sex: Female
  Weight: 64 kg

DRUGS (4)
  1. HUMALOG [Concomitant]
     Active Substance: INSULIN LISPRO
  2. CLIKSTAR [Suspect]
     Active Substance: CLIKSTAR
     Indication: TYPE 2 DIABETES MELLITUS
  3. GALVUS [Concomitant]
     Active Substance: VILDAGLIPTIN
     Dosage: 1 TABLET IN THE MORNING AND ANOTHER IN THE EVENING
  4. LANTUS [Suspect]
     Active Substance: INSULIN GLARGINE
     Indication: TYPE 2 DIABETES MELLITUS
     Route: 065

REACTIONS (3)
  - Hyperglycaemia [Recovering/Resolving]
  - Femur fracture [Recovering/Resolving]
  - Fall [Unknown]

NARRATIVE: CASE EVENT DATE: 20151212
